FAERS Safety Report 5369284-X (Version None)
Quarter: 2007Q2

REPORT INFORMATION
  Report Type: 
  Country: None (occurrence: None)
  Receive Date: 20070625
  Receipt Date: 20070618
  Transmission Date: 20071010
  Serious: Yes (Hospitalization)
  Sender: FDA-Public Use
  Company Number: DE-ELI_LILLY_AND_COMPANY-DE200706004044

PATIENT
  Age: 47 Year
  Sex: Female

DRUGS (3)
  1. ZYPREXA [Suspect]
     Indication: SCHIZOAFFECTIVE DISORDER
     Dosage: 20 MG, DAILY (1/D)
     Route: 048
     Dates: start: 20070427
  2. ZYPREXA [Suspect]
     Route: 048
     Dates: end: 20070605
  3. ORFIRIL LONG [Concomitant]
     Dosage: 1000 MG, 2/D
     Route: 048

REACTIONS (1)
  - PANCYTOPENIA [None]
